FAERS Safety Report 8201161-9 (Version None)
Quarter: 2012Q1

REPORT INFORMATION
  Report Type: 
  Country: None (occurrence: None)
  Receive Date: 20120312
  Receipt Date: 20120302
  Transmission Date: 20120608
  Serious: Yes (Hospitalization)
  Sender: FDA-Public Use
  Company Number: PHHY2012CN020405

PATIENT
  Age: 62 Year
  Sex: Male

DRUGS (1)
  1. CARBAMAZEPINE [Suspect]

REACTIONS (13)
  - ORAL MUCOSA EROSION [None]
  - DRY SKIN [None]
  - PRURITUS [None]
  - SKIN CHAPPED [None]
  - DERMATITIS EXFOLIATIVE [None]
  - RASH MACULO-PAPULAR [None]
  - HYPERSENSITIVITY [None]
  - FLUSHING [None]
  - OEDEMA PERIPHERAL [None]
  - SKIN EXFOLIATION [None]
  - SKIN LESION [None]
  - CONJUNCTIVAL HYPERAEMIA [None]
  - CONJUNCTIVAL OEDEMA [None]
